FAERS Safety Report 15136741 (Version 8)
Quarter: 2018Q4

REPORT INFORMATION
  Report Type: Report from Study
  Country: None (occurrence: PL)
  Receive Date: 20180712
  Receipt Date: 20181102
  Transmission Date: 20190204
  Serious: Yes (Hospitalization)
  Sender: FDA-Public Use
  Company Number: PL-ABBVIE-17P-129-2207048-00

PATIENT
  Age: 26 Year
  Sex: Female
  Weight: 68 kg

DRUGS (6)
  1. PENTASA [Concomitant]
     Active Substance: MESALAMINE
     Route: 048
     Dates: start: 20171227, end: 20171227
  2. HUMIRA [Suspect]
     Active Substance: ADALIMUMAB
     Route: 058
     Dates: start: 20170531, end: 20171225
  3. HUMIRA [Suspect]
     Active Substance: ADALIMUMAB
     Route: 058
     Dates: start: 20170504, end: 20170518
  4. HUMIRA [Suspect]
     Active Substance: ADALIMUMAB
     Indication: COLITIS ULCERATIVE
     Route: 058
     Dates: start: 20170403, end: 20170403
  5. HUMIRA [Suspect]
     Active Substance: ADALIMUMAB
     Route: 058
     Dates: start: 20170418, end: 20170418
  6. PENTASA [Concomitant]
     Active Substance: MESALAMINE
     Indication: COLITIS ULCERATIVE
     Route: 048
     Dates: start: 20161130

REACTIONS (6)
  - Pleural effusion [Recovered/Resolved]
  - Fibromatosis [Recovered/Resolved]
  - Fibromatosis [Recovered/Resolved]
  - Fibromatosis [Recovered/Resolved]
  - Fibromatosis [Recovered/Resolved]
  - Fibromatosis [Recovered/Resolved]

NARRATIVE: CASE EVENT DATE: 201710
